FAERS Safety Report 4991387-X (Version None)
Quarter: 2006Q2

REPORT INFORMATION
  Report Type: 
  Country: None (occurrence: None)
  Receive Date: 20060428
  Receipt Date: 20060414
  Transmission Date: 20061013
  Serious: Yes (Other)
  Sender: FDA-Public Use
  Company Number: US_0509121746

PATIENT
  Age: 15 Year
  Sex: Male
  Weight: 103.9 kg

DRUGS (1)
  1. ZYPREXA [Suspect]
     Indication: HALLUCINATION, VISUAL
     Dosage: 10 MG, ORAL
     Route: 048
     Dates: start: 20030301, end: 20030801

REACTIONS (12)
  - ASTHENIA [None]
  - CONFUSIONAL STATE [None]
  - COORDINATION ABNORMAL [None]
  - DIABETES MELLITUS NON-INSULIN-DEPENDENT [None]
  - DIZZINESS [None]
  - DYSARTHRIA [None]
  - HYPERGLYCAEMIC HYPEROSMOLAR NONKETOTIC SYNDROME [None]
  - HYPERPHAGIA [None]
  - LOSS OF CONSCIOUSNESS [None]
  - MALAISE [None]
  - POLYDIPSIA [None]
  - THIRST [None]
